FAERS Safety Report 8690780 (Version 3)
Quarter: 2013Q4

REPORT INFORMATION
  Report Type: Spontaneous
  Country: US (occurrence: US)
  Receive Date: 20120728
  Receipt Date: 20131101
  Transmission Date: 20140711
  Serious: No
  Sender: FDA-Public Use
  Company Number: US-009507513-2012SP010247

PATIENT
  Age: 17 Year
  Sex: Female
  Weight: 52.61 kg

DRUGS (1)
  1. IMPLANON [Suspect]
     Indication: CONTRACEPTION
     Dosage: UNK
     Dates: start: 20110301

REACTIONS (1)
  - Pregnancy with implant contraceptive [Not Recovered/Not Resolved]
